FAERS Safety Report 7918353-6 (Version None)
Quarter: 2011Q4

REPORT INFORMATION
  Report Type: 
  Country: None (occurrence: None)
  Receive Date: 20111116
  Receipt Date: 20111108
  Transmission Date: 20120403
  Serious: Yes (Other)
  Sender: FDA-Public Use
  Company Number: US-SANOFI-AVENTIS-2011SA074081

PATIENT
  Age: 73 Year
  Sex: Male

DRUGS (5)
  1. LANTUS [Suspect]
     Dosage: DOSE:18 UNIT(S)
     Route: 058
     Dates: start: 20030101
  2. LANTUS [Suspect]
     Dosage: DOSE:40 UNIT(S)
     Route: 058
     Dates: start: 20110101
  3. SOLOSTAR [Suspect]
     Dates: start: 20110801
  4. GLUCOPHAGE [Concomitant]
     Dates: end: 20111001
  5. GLUCOPHAGE [Concomitant]
     Dates: start: 20111001

REACTIONS (5)
  - DYSKINESIA [None]
  - HYPOGLYCAEMIA [None]
  - ROTATOR CUFF REPAIR [None]
  - FALL [None]
  - BLOOD GLUCOSE INCREASED [None]
